FAERS Safety Report 9753075 (Version 1)
Quarter: 2013Q4

REPORT INFORMATION
  Report Type: Spontaneous
  Country: US (occurrence: US)
  Receive Date: 20131213
  Receipt Date: 20131213
  Transmission Date: 20140711
  Serious: No
  Sender: FDA-Public Use
  Company Number: US-GILEAD-2009-0026208

PATIENT
  Age: 72 Year
  Sex: Female

DRUGS (11)
  1. LETAIRIS [Suspect]
     Indication: PULMONARY ARTERIAL HYPERTENSION
     Route: 048
     Dates: start: 20070901
  2. CARDIZEM [Concomitant]
  3. FOSAMAX [Concomitant]
  4. REVATIO [Concomitant]
  5. ADVAIR [Concomitant]
  6. SPIRIVA [Concomitant]
  7. MVI [Concomitant]
  8. COUMADIN [Concomitant]
  9. TRICOR [Concomitant]
  10. GLUCOTROL [Concomitant]
  11. FOLIC ACID [Concomitant]

REACTIONS (1)
  - Cardiac disorder [Unknown]
